FAERS Safety Report 18171768 (Version 2)
Quarter: 2021Q3

REPORT INFORMATION
  Report Type: Spontaneous
  Country: US (occurrence: US)
  Receive Date: 20200819
  Receipt Date: 20210813
  Transmission Date: 20211014
  Serious: No
  Sender: FDA-Public Use
  Company Number: US-AEGERION PHARMACEUTICAL, INC-AEGR004856

PATIENT
  Sex: Female
  Weight: 53.97 kg

DRUGS (2)
  1. JUXTAPID [Suspect]
     Active Substance: LOMITAPIDE MESYLATE
     Indication: TYPE IIA HYPERLIPIDAEMIA
     Dosage: 40 MG, QD AT BEDTIME
     Route: 048
     Dates: start: 20181031
  2. JUXTAPID [Suspect]
     Active Substance: LOMITAPIDE MESYLATE
     Dosage: 20 MG, EACH NIGHT
     Route: 048

REACTIONS (4)
  - Infection [Unknown]
  - Weight decreased [Recovering/Resolving]
  - Diarrhoea [Not Recovered/Not Resolved]
  - Diet noncompliance [Recovered/Resolved]
